FAERS Safety Report 4996663-2 (Version None)
Quarter: 2006Q2

REPORT INFORMATION
  Report Type: 
  Country: None (occurrence: None)
  Receive Date: 20060509
  Receipt Date: 20050330
  Transmission Date: 20061013
  Serious: Yes (Hospitalization, Disabling)
  Sender: FDA-Public Use
  Company Number: US-MERCK-0503USA05266

PATIENT
  Age: 50 Year
  Sex: Male
  Weight: 67 kg

DRUGS (8)
  1. VIOXX [Suspect]
     Indication: RHEUMATOID ARTHRITIS
     Route: 048
     Dates: start: 20000101, end: 20040101
  2. RELAFEN [Concomitant]
     Indication: ARTHRITIS
     Route: 065
  3. DAYPRO [Concomitant]
     Indication: ARTHRITIS
     Route: 065
  4. PREDNISONE [Concomitant]
     Indication: SWELLING FACE
     Route: 065
  5. PREDNISONE [Concomitant]
     Indication: ARTHRITIS
     Route: 065
  6. DENAVIR [Concomitant]
     Indication: PSORIASIS
     Route: 065
  7. DOVONEX [Concomitant]
     Indication: PSORIASIS
     Route: 065
  8. [THERAPY UNSPECIFIED] [Concomitant]
     Route: 065

REACTIONS (13)
  - ANXIETY [None]
  - BACTERIAL INFECTION [None]
  - CEREBROVASCULAR ACCIDENT [None]
  - DEPRESSION [None]
  - FALL [None]
  - HYPERSENSITIVITY [None]
  - HYPOAESTHESIA [None]
  - LIVER DISORDER [None]
  - PARAESTHESIA [None]
  - SINUSITIS [None]
  - SWELLING FACE [None]
  - SWOLLEN TONGUE [None]
  - TRANSIENT ISCHAEMIC ATTACK [None]
